FAERS Safety Report 5608542-8 (Version None)
Quarter: 2008Q1

REPORT INFORMATION
  Report Type: 
  Country: None (occurrence: None)
  Receive Date: 20080130
  Receipt Date: 20080118
  Transmission Date: 20080703
  Serious: Yes (Other)
  Sender: FDA-Public Use
  Company Number: IE-PFIZER INC-2008005722

PATIENT
  Sex: Female

DRUGS (1)
  1. DALACIN VAGINAL CREAM [Suspect]
     Route: 067

REACTIONS (4)
  - COLOSTOMY [None]
  - INCORRECT DOSE ADMINISTERED [None]
  - INTENTIONAL DRUG MISUSE [None]
  - LIVER DISORDER [None]
